FAERS Safety Report 8326329-2 (Version None)
Quarter: 2012Q2

REPORT INFORMATION
  Report Type: 
  Country: None (occurrence: None)
  Receive Date: 20120501
  Receipt Date: 20120425
  Transmission Date: 20120825
  Serious: Yes (Death)
  Sender: FDA-Public Use
  Company Number: JP-ELI_LILLY_AND_COMPANY-JP201111005197

PATIENT
  Sex: Male
  Weight: 57 kg

DRUGS (10)
  1. FAMOTIDINE [Concomitant]
     Dosage: 20 MG, BID
     Route: 048
     Dates: start: 20080303
  2. CARBOPLATIN [Concomitant]
     Indication: LUNG SQUAMOUS CELL CARCINOMA RECURRENT
     Dosage: 400 MG, UNK
     Route: 042
     Dates: start: 20071023, end: 20080213
  3. DORNER [Concomitant]
     Dosage: 20 UG, TID
     Route: 048
     Dates: start: 20080303
  4. GEMZAR [Suspect]
     Indication: LUNG SQUAMOUS CELL CARCINOMA RECURRENT
     Dosage: 1675 MG, UNK
     Route: 042
     Dates: start: 20071024, end: 20080213
  5. ADENOSINE [Concomitant]
     Dosage: 100 MG, TID
     Route: 048
     Dates: start: 20080303
  6. SEROTONE [Concomitant]
     Indication: PROPHYLAXIS
     Dosage: 10 MG, QD
     Route: 042
     Dates: start: 20080304
  7. DECADRAN                           /00016002/ [Concomitant]
     Indication: PROPHYLAXIS
     Dosage: 8 MG, QD
     Route: 042
  8. VITAMIN B12 [Concomitant]
     Dosage: 500 UG, TID
     Route: 048
     Dates: start: 20080303
  9. DOCETAXEL [Concomitant]
     Indication: LUNG SQUAMOUS CELL CARCINOMA RECURRENT
     Dosage: 100 MG, OTHER
     Route: 042
     Dates: start: 20080304
  10. LENDORMIN [Concomitant]
     Dosage: 0.25 MG, QD
     Route: 048
     Dates: start: 20080303

REACTIONS (1)
  - INTERSTITIAL LUNG DISEASE [None]
